FAERS Safety Report 7197153-1 (Version None)
Quarter: 2010Q4

REPORT INFORMATION
  Report Type: 
  Country: None (occurrence: None)
  Receive Date: 20101224
  Receipt Date: 20101223
  Transmission Date: 20110411
  Serious: Yes (Death, Hospitalization)
  Sender: FDA-Public Use
  Company Number: PHHO2010GB17823

PATIENT
  Sex: Male

DRUGS (2)
  1. AFINITOR [Suspect]
     Indication: ACUTE MYELOID LEUKAEMIA
     Dosage: UNK
     Route: 048
     Dates: start: 20101108
  2. ARA-C [Suspect]

REACTIONS (3)
  - CIRCULATORY COLLAPSE [None]
  - FEBRILE NEUTROPENIA [None]
  - SEPSIS [None]
